FAERS Safety Report 10239213 (Version 1)
Quarter: 2014Q2

REPORT INFORMATION
  Report Type: Spontaneous
  Country: SE (occurrence: SE)
  Receive Date: 20140616
  Receipt Date: 20140616
  Transmission Date: 20141212
  Serious: Yes (Hospitalization, Other)
  Sender: FDA-Public Use
  Company Number: SE-GLAXOSMITHKLINE-B1002277A

PATIENT
  Age: 79 Year
  Sex: Female

DRUGS (13)
  1. VALTREX [Suspect]
     Indication: OPHTHALMIC HERPES ZOSTER
     Dosage: 500MG TWICE PER DAY
     Route: 048
     Dates: start: 20140505, end: 20140507
  2. SODIUM PICOSULFATE [Concomitant]
  3. LAKTULOS [Concomitant]
  4. TROMBYL [Concomitant]
  5. BEHEPAN [Concomitant]
  6. NEORECORMON [Concomitant]
  7. IMDUR [Concomitant]
  8. FURIX [Concomitant]
  9. DOLCONTIN [Concomitant]
  10. AMLODIPINE [Concomitant]
  11. ALVEDON [Concomitant]
  12. AZARGA [Concomitant]
  13. TRAVATAN [Concomitant]

REACTIONS (4)
  - Confusional state [Recovered/Resolved]
  - Hallucination [Recovered/Resolved]
  - Dysarthria [Recovered/Resolved]
  - General physical health deterioration [Recovered/Resolved]
